FAERS Safety Report 8508578-3 (Version None)
Quarter: 2012Q3

REPORT INFORMATION
  Report Type: 
  Country: None (occurrence: None)
  Receive Date: 20120713
  Receipt Date: 20120629
  Transmission Date: 20120928
  Serious: Yes (Hospitalization)
  Sender: FDA-Public Use
  Company Number: US-MYLANLABS-2012S1013582

PATIENT
  Age: 68 Year
  Sex: Female
  Weight: 84 kg

DRUGS (30)
  1. FENTANYL [Suspect]
     Dosage: 100 MICROG POSTOPERATIVELY
     Route: 065
  2. CLONAZEPAM [Concomitant]
     Route: 065
  3. PROPOFOL [Concomitant]
     Indication: INDUCTION OF ANAESTHESIA
     Dosage: 200MG
     Route: 065
  4. HYDROMORPHONE HCL [Concomitant]
     Dosage: 0.4MG POSTOPERATIVELY
     Route: 065
  5. OMEPRAZOLE [Concomitant]
     Route: 065
  6. LISINOPRIL [Concomitant]
     Route: 065
  7. GABITRIL [Concomitant]
     Route: 065
  8. CALCIUM [Concomitant]
     Route: 065
  9. MIDAZOLAM [Concomitant]
     Indication: PREMEDICATION
     Route: 065
  10. SUXAMETHONIUM CHLORIDE [Concomitant]
     Indication: INDUCTION OF ANAESTHESIA
     Dosage: 120MG
     Route: 065
  11. FENTANYL [Suspect]
     Dosage: 50 MICROG TOWARDS THE END OF SURGERY; THEN 100 MICROG POSTOPERATIVELY
     Route: 065
  12. PAXIL [Suspect]
     Route: 065
  13. FLUDROCORTISONE ACETATE [Concomitant]
     Route: 065
  14. SENNA-MINT WAF [Concomitant]
     Route: 065
  15. WELLBUTRIN [Suspect]
     Route: 065
  16. GABAPENTIN [Concomitant]
     Route: 065
  17. HYDROMORPHONE HCL [Concomitant]
     Dosage: 1.0MG TOWARDS THE END OF SURGERY; THEN 0.4MG POSTOPERATIVELY
     Route: 065
  18. FENTANYL [Suspect]
     Indication: INDUCTION OF ANAESTHESIA
     Dosage: 100 MICROG; THEN 50 MICROG TOWARDS THE END OF SURGERY
     Route: 065
  19. ONDANSETRON [Suspect]
     Dosage: 4MG TOWARDS THE END OF SURGERY
     Route: 065
  20. FENTANYL [Suspect]
     Dosage: 100 MICROG POSTOPERATIVELY
     Route: 065
  21. DYAZIDE [Concomitant]
     Route: 065
  22. LIPITOR [Concomitant]
     Route: 065
  23. DESFLURANE [Concomitant]
     Indication: MAINTENANCE OF ANAESTHESIA
     Dosage: 3.9-7.2% END-TIDAL DESFLURANE IN 50/50 NITROUS OXIDE/OXYGEN
     Route: 065
  24. FENTANYL [Suspect]
     Indication: PAIN
     Dosage: 100 MICROG; THEN 50 MICROG TOWARDS THE END OF SURGERY
     Route: 065
  25. CYMBALTA [Suspect]
     Route: 065
  26. OXYCODONE HCL [Concomitant]
     Route: 065
  27. FOSAMAX [Concomitant]
     Route: 065
  28. FENTANYL [Suspect]
     Dosage: 50 MICROG TOWARDS THE END OF SURGERY; THEN 100 MICROG POSTOPERATIVELY
     Route: 065
  29. LEVOTHYROXINE SODIUM [Concomitant]
     Route: 065
  30. NITROUS OXIDE W/ OXYGEN [Concomitant]
     Indication: MAINTENANCE OF ANAESTHESIA
     Dosage: 50/50 NITROUS OXIDE/OXYGEN
     Route: 065

REACTIONS (1)
  - SEROTONIN SYNDROME [None]
